FAERS Safety Report 13914078 (Version 4)
Quarter: 2018Q2

REPORT INFORMATION
  Report Type: Spontaneous
  Country: US (occurrence: US)
  Receive Date: 20170829
  Receipt Date: 20180511
  Transmission Date: 20180711
  Serious: Yes (Death, Hospitalization)
  Sender: FDA-Public Use
  Company Number: US-PFIZER INC-2017369809

PATIENT
  Age: 67 Year
  Sex: Female

DRUGS (2)
  1. IBRANCE [Suspect]
     Active Substance: PALBOCICLIB
     Dosage: 75 MG, UNK
     Dates: start: 20170920
  2. IBRANCE [Suspect]
     Active Substance: PALBOCICLIB
     Indication: BONE CANCER
     Dosage: 100 MG, CYCLIC (FOR 21 DAYS OFF 7 DAYS)

REACTIONS (6)
  - Diarrhoea [Recovered/Resolved]
  - Death [Fatal]
  - Full blood count decreased [Unknown]
  - Urinary tract infection [Recovered/Resolved]
  - Enteritis [Recovered/Resolved]
  - Product use in unapproved indication [Unknown]
